FAERS Safety Report 22053297 (Version 1)
Quarter: 2023Q1

REPORT INFORMATION
  Report Type: Spontaneous
  Country: CN (occurrence: CN)
  Receive Date: 20230302
  Receipt Date: 20230302
  Transmission Date: 20230417
  Serious: Yes (Life-Threatening)
  Sender: FDA-Public Use
  Company Number: CN-BoehringerIngelheim-2023-BI-221454

PATIENT
  Age: 79 Year
  Sex: Female
  Weight: 47 kg

DRUGS (2)
  1. ALTEPLASE [Suspect]
     Active Substance: ALTEPLASE
     Indication: Cerebral infarction
     Route: 042
     Dates: start: 20230218, end: 20230218
  2. SODIUM CHLORIDE [Concomitant]
     Active Substance: SODIUM CHLORIDE
     Indication: Drug therapy
     Route: 042
     Dates: start: 20230218, end: 20230218

REACTIONS (2)
  - Cerebral haemorrhage [Not Recovered/Not Resolved]
  - Brain herniation [Not Recovered/Not Resolved]

NARRATIVE: CASE EVENT DATE: 20230218
